FAERS Safety Report 7630879-1 (Version None)
Quarter: 2011Q3

REPORT INFORMATION
  Report Type: 
  Country: None (occurrence: None)
  Receive Date: 20110724
  Receipt Date: 20110712
  Transmission Date: 20111222
  Serious: Yes (Hospitalization, Other)
  Sender: FDA-Public Use
  Company Number: US-AMGEN-USASP2011025712

PATIENT
  Age: 70 Year
  Sex: Male

DRUGS (1)
  1. ENBREL [Suspect]
     Indication: RHEUMATOID ARTHRITIS
     Dosage: 50 MG, QWK
     Dates: start: 20030715

REACTIONS (13)
  - HYPERTENSION [None]
  - CORONARY ARTERY DISEASE [None]
  - HEADACHE [None]
  - ARTERIOSCLEROSIS [None]
  - BRAIN NEOPLASM [None]
  - DEEP VEIN THROMBOSIS [None]
  - RECTAL HAEMORRHAGE [None]
  - KNEE ARTHROPLASTY [None]
  - RHEUMATOID ARTHRITIS [None]
  - STRESS [None]
  - ARTHRALGIA [None]
  - DIABETES MELLITUS [None]
  - CONVULSION [None]
